FAERS Safety Report 9280616 (Version 1)
Quarter: 2013Q2

REPORT INFORMATION
  Report Type: Report from Study
  Country: CA (occurrence: CA)
  Receive Date: 20130509
  Receipt Date: 20130509
  Transmission Date: 20140414
  Serious: Yes (Other)
  Sender: FDA-Public Use
  Company Number: CA-JNJFOC-20130415989

PATIENT
  Age: 28 Year
  Sex: Male
  Weight: 104 kg

DRUGS (1)
  1. REMICADE [Suspect]
     Indication: COLITIS ULCERATIVE
     Dosage: PLUS OR MINUS 521 MG
     Route: 042
     Dates: start: 20121116

REACTIONS (4)
  - Pyrexia [Recovering/Resolving]
  - Decreased appetite [Unknown]
  - Infection [Unknown]
  - Weight decreased [Unknown]
